FAERS Safety Report 8974924 (Version 1)
Quarter: 2012Q4

REPORT INFORMATION
  Report Type: 
  Country: CO (occurrence: CO)
  Receive Date: 20121219
  Receipt Date: 20121219
  Transmission Date: 20130627
  Serious: Yes (Hospitalization)
  Sender: FDA-Public Use
  Company Number: CO-ELI_LILLY_AND_COMPANY-CO201212003587

PATIENT
  Age: 89 Year
  Sex: Female

DRUGS (9)
  1. FORTEO [Suspect]
     Indication: OSTEOPOROSIS
     Dosage: 20 ug, qd
     Route: 058
     Dates: start: 201208, end: 201211
  2. FLUOXETINE [Concomitant]
     Dosage: UNK, unknown
  3. NETROCIN [Concomitant]
     Dosage: UNK, unknown
  4. OMEPRAZOLE [Concomitant]
     Dosage: UNK, unknown
  5. PRAZOSIN [Concomitant]
     Dosage: UNK, unknown
  6. LOSARTAN [Concomitant]
     Dosage: UNK, unknown
  7. ACETAMINOPHEN W/CODEINE PHOSPHATE [Concomitant]
     Dosage: UNK, unknown
  8. CALCITRIOL [Concomitant]
     Dosage: UNK, unknown
  9. CALCIUM WITH VITAMIN D             /00944201/ [Concomitant]
     Dosage: UNK, unknown

REACTIONS (1)
  - Thyroid function test abnormal [Not Recovered/Not Resolved]
